FAERS Safety Report 7768940-3 (Version None)
Quarter: 2011Q3

REPORT INFORMATION
  Report Type: 
  Country: None (occurrence: None)
  Receive Date: 20110922
  Receipt Date: 20110310
  Transmission Date: 20111222
  Serious: No
  Sender: FDA-Public Use
  Company Number: US-ASTRAZENECA-2011SE13454

PATIENT
  Age: 73 Year
  Sex: Female
  Weight: 79.4 kg

DRUGS (7)
  1. LISINOPRIL [Concomitant]
     Route: 048
  2. THYROID MEDICATION [Concomitant]
     Route: 048
  3. ANUCORT [Concomitant]
     Route: 054
  4. SIMVASTATIN [Concomitant]
  5. SEROQUEL XR [Suspect]
     Indication: DEPRESSION
     Route: 048
     Dates: start: 20100101, end: 20101201
  6. SEROQUEL XR [Suspect]
     Indication: ANXIETY
     Route: 048
     Dates: start: 20100101, end: 20101201
  7. ALENDRONATE SODIUM [Concomitant]

REACTIONS (8)
  - WEIGHT INCREASED [None]
  - HAIR GROWTH ABNORMAL [None]
  - ASTHENIA [None]
  - NAIL GROWTH ABNORMAL [None]
  - VOMITING [None]
  - CATARACT [None]
  - DENTAL CARIES [None]
  - NAUSEA [None]
